FAERS Safety Report 9160796 (Version 1)
Quarter: 2013Q1

REPORT INFORMATION
  Report Type: Spontaneous
  Country: CO (occurrence: None)
  Receive Date: 20130220
  Receipt Date: 20130220
  Transmission Date: 20140127
  Serious: Yes (Hospitalization)
  Sender: FDA-Public Use
  Company Number: DSU-2013-01417

PATIENT
  Age: 92 Year
  Sex: Male

DRUGS (3)
  1. OLMETEC (OLMESARTAN MEDOXOMIL) (TABLET) (OLMESARTAN MEDOXOMIL) [Suspect]
     Indication: HYPERTENSION
     Route: 048
     Dates: start: 2008
  2. CONCOR (BISOPROLOL FUMARATE) (BISOPROLOL FUMARATE) [Concomitant]
  3. CRESTOR (ROSUVASTATIN) (ROSUVASTATIN) [Concomitant]

REACTIONS (3)
  - Spinal column injury [None]
  - Pain [None]
  - Hallucination [None]
